FAERS Safety Report 16460312 (Version 1)
Quarter: 2019Q2

REPORT INFORMATION
  Report Type: Spontaneous
  Country: US (occurrence: US)
  Receive Date: 20190620
  Receipt Date: 20190620
  Transmission Date: 20190711
  Serious: Yes (Hospitalization)
  Sender: FDA-Public Use
  Company Number: US-MYLANLABS-2019M1057629

PATIENT
  Age: 30 Year
  Sex: Female

DRUGS (8)
  1. SODIUM BICARBONATE. [Concomitant]
     Active Substance: SODIUM BICARBONATE
     Indication: CARDIOTOXICITY
     Route: 050
  2. DESIPRAMINE [Concomitant]
     Active Substance: DESIPRAMINE
     Indication: PRODUCT USED FOR UNKNOWN INDICATION
     Dosage: INGESTED AN UNKNOWN QUANTITY OF DESIPRAMINE
     Route: 048
  3. HYPERTONIC SALINE SOLUTION [Concomitant]
     Active Substance: SODIUM CHLORIDE
     Indication: CARDIOTOXICITY
     Route: 050
  4. FAT EMULSION NOS [Suspect]
     Active Substance: EGG PHOSPHOLIPIDS\SAFFLOWER OIL\SOYBEAN OIL
     Indication: CARDIOTOXICITY
     Route: 042
  5. SODIUM BICARBONATE. [Concomitant]
     Active Substance: SODIUM BICARBONATE
     Indication: CARDIOTOXICITY
     Dosage: SEVEN 50 MEQ DOSES OF SODIUM BICARBONATE OVER ONE HOUR
     Route: 040
  6. ZOLPIDEM [Suspect]
     Active Substance: ZOLPIDEM\ZOLPIDEM TARTRATE
     Indication: PRODUCT USED FOR UNKNOWN INDICATION
     Dosage: INGESTED AN UNKNOWN QUANTITY OF ZOLPIDEM
     Route: 048
  7. SODIUM BICARBONATE. [Concomitant]
     Active Substance: SODIUM BICARBONATE
     Dosage: TWELVE 50 MEQ DOSES OF SODIUM BICARBONATE OVER 1.5 HOUR
     Route: 040
  8. LIDOCAINE. [Suspect]
     Active Substance: LIDOCAINE
     Indication: CARDIOTOXICITY
     Dosage: LIDOCAINE INFUSION AT RATE OF 2-4 MG/MINUTE
     Route: 050

REACTIONS (3)
  - Mydriasis [Recovered/Resolved]
  - Drug ineffective [Unknown]
  - Somnolence [Recovered/Resolved]
